FAERS Safety Report 26019531 (Version 2)
Quarter: 2025Q4

REPORT INFORMATION
  Report Type: Spontaneous
  Country: TW (occurrence: TW)
  Receive Date: 20251110
  Receipt Date: 20251203
  Transmission Date: 20260118
  Serious: Yes (Other)
  Sender: ROCHE
  Company Number: TW-ROCHE-10000423496

PATIENT
  Age: 57 Year
  Sex: Female

DRUGS (2)
  1. AVASTIN [Suspect]
     Active Substance: BEVACIZUMAB
     Indication: Hepatocellular carcinoma
     Dosage: UNKNOWN DOSE
     Route: 065
  2. TECENTRIQ [Suspect]
     Active Substance: ATEZOLIZUMAB
     Indication: Hepatocellular carcinoma
     Dosage: UNKNOWN DOSE
     Route: 065

REACTIONS (4)
  - Pneumonitis [Recovering/Resolving]
  - Disease recurrence [Unknown]
  - Hepatic neoplasm [Unknown]
  - Metastases to bone [Unknown]
